FAERS Safety Report 6562114-X (Version None)
Quarter: 2010Q1

REPORT INFORMATION
  Report Type: 
  Country: None (occurrence: None)
  Receive Date: 20100130
  Receipt Date: 20091104
  Transmission Date: 20100710
  Serious: No
  Sender: FDA-Public Use
  Company Number: US-ABBOTT-09P-163-0603697-00

PATIENT
  Sex: Female
  Weight: 90.346 kg

DRUGS (11)
  1. HUMIRA [Suspect]
     Indication: RHEUMATOID ARTHRITIS
     Route: 058
     Dates: start: 20081101
  2. SULINDAC [Concomitant]
     Indication: ARTHRALGIA
     Route: 048
  3. VITAMIN D [Concomitant]
     Indication: DRUG USE FOR UNKNOWN INDICATION
  4. VITAMIN C [Concomitant]
     Indication: DRUG USE FOR UNKNOWN INDICATION
  5. CALTRATE CALCIUM [Concomitant]
     Indication: DRUG USE FOR UNKNOWN INDICATION
  6. VITAMIN B-12 [Concomitant]
     Indication: DRUG USE FOR UNKNOWN INDICATION
  7. FISH OIL [Concomitant]
     Indication: DRUG USE FOR UNKNOWN INDICATION
  8. COQ10 [Concomitant]
     Indication: DRUG USE FOR UNKNOWN INDICATION
  9. BABY ASPIRIN [Concomitant]
     Indication: DRUG USE FOR UNKNOWN INDICATION
  10. LOTRIM PATCHES [Concomitant]
     Indication: BACK PAIN
     Route: 062
  11. IBUPROFEN [Concomitant]
     Indication: DRUG USE FOR UNKNOWN INDICATION

REACTIONS (6)
  - ABASIA [None]
  - ARTHRITIS [None]
  - DYSSTASIA [None]
  - MUSCULAR WEAKNESS [None]
  - PARAESTHESIA [None]
  - WEIGHT BEARING DIFFICULTY [None]
